FAERS Safety Report 24134349 (Version 2)
Quarter: 2024Q3

REPORT INFORMATION
  Report Type: Report from Study
  Country: TW (occurrence: TW)
  Receive Date: 20240725
  Receipt Date: 20240808
  Transmission Date: 20241017
  Serious: Yes (Hospitalization)
  Sender: ABBVIE
  Company Number: TW-ABBVIE-5848461

PATIENT
  Age: 59 Year
  Sex: Female
  Weight: 71 kg

DRUGS (8)
  1. RINVOQ [Suspect]
     Active Substance: UPADACITINIB
     Indication: Rheumatoid arthritis
     Route: 058
     Dates: start: 20221219
  2. BOMECON [Concomitant]
     Indication: Rheumatoid arthritis
     Route: 048
     Dates: start: 20230712, end: 20240207
  3. CYCLOPHOSPHAMIDE [Concomitant]
     Active Substance: CYCLOPHOSPHAMIDE
     Indication: Rheumatoid arthritis
     Route: 048
     Dates: start: 20240306
  4. ENOXAPARIN [Concomitant]
     Active Substance: ENOXAPARIN
     Indication: Embolism venous
     Dosage: 60MG?FREQUENCY TEXT: QD
     Route: 058
     Dates: start: 20240712
  5. WARFARIN [Concomitant]
     Active Substance: WARFARIN
     Indication: Embolism venous
     Route: 048
     Dates: start: 20240712, end: 20240717
  6. WARFARIN [Concomitant]
     Active Substance: WARFARIN
     Indication: Embolism venous
     Route: 048
     Dates: start: 20240717
  7. VANCOMYCIN [Concomitant]
     Active Substance: VANCOMYCIN
     Indication: Infection
     Route: 041
     Dates: start: 20240705, end: 20240710
  8. VANCOMYCIN [Concomitant]
     Active Substance: VANCOMYCIN
     Indication: Infection
     Route: 041
     Dates: start: 20240710, end: 20240715

REACTIONS (3)
  - Thrombosed varicose vein [Unknown]
  - Cellulitis [Not Recovered/Not Resolved]
  - Skin mass [Not Recovered/Not Resolved]

NARRATIVE: CASE EVENT DATE: 20240705
